FAERS Safety Report 23669508 (Version 1)
Quarter: 2024Q1

REPORT INFORMATION
  Report Type: Spontaneous
  Country: US (occurrence: None)
  Receive Date: 20240325
  Receipt Date: 20240325
  Transmission Date: 20240410
  Serious: No
  Sender: FDA-Public Use
  Company Number: None

PATIENT
  Sex: Female

DRUGS (1)
  1. ORENCIA [Suspect]
     Active Substance: ABATACEPT
     Indication: Rheumatoid arthritis
     Dosage: FREQ: INJECT 125 MG UNDER THE SKIN (SUBCUTANEOUS INJECTIONS) EVERY 7 DAYS
     Route: 058
     Dates: start: 20200304

REACTIONS (1)
  - Surgery [None]
